FAERS Safety Report 5334754-7 (Version None)
Quarter: 2007Q2

REPORT INFORMATION
  Report Type: 
  Country: None (occurrence: None)
  Receive Date: 20070525
  Receipt Date: 20070511
  Transmission Date: 20071010
  Serious: Yes (Other)
  Sender: FDA-Public Use
  Company Number: US-ELI_LILLY_AND_COMPANY-US200705003148

PATIENT
  Age: 17 Year
  Sex: Male

DRUGS (6)
  1. STRATTERA [Suspect]
     Dosage: 40 MG, EACH MORNING
     Route: 048
     Dates: start: 20030101
  2. CYMBALTA [Suspect]
     Dosage: 60 MG, EACH MORNING
     Route: 048
     Dates: start: 20061101
  3. DEPAKOTE [Concomitant]
  4. AVAPRO [Concomitant]
  5. HYDROCHLOROTHIAZIDE [Concomitant]
  6. CALCITRIOL [Concomitant]

REACTIONS (1)
  - JAW FRACTURE [None]
